FAERS Safety Report 5780335-0 (Version None)
Quarter: 2008Q2

REPORT INFORMATION
  Report Type: 
  Country: None (occurrence: None)
  Receive Date: 20080620
  Receipt Date: 20080616
  Transmission Date: 20081010
  Serious: Yes (Other)
  Sender: FDA-Public Use
  Company Number: A0734182A

PATIENT
  Sex: Female

DRUGS (8)
  1. LAMICTAL [Suspect]
     Indication: BIPOLAR DISORDER
     Dosage: 150MG PER DAY
     Route: 048
     Dates: start: 20020101
  2. NEURONTIN [Concomitant]
     Dosage: 800MG TWICE PER DAY
  3. SEROQUEL [Concomitant]
     Dosage: 200MG PER DAY
  4. PLAVIX [Concomitant]
     Dosage: 75MG PER DAY
  5. ADALAT [Concomitant]
     Dosage: 20MG PER DAY
  6. HYZAAR [Concomitant]
     Dosage: 50MG IN THE MORNING
  7. ATIVAN [Concomitant]
     Dosage: 1MG AS REQUIRED
  8. UNSPECIFIED MEDICATION [Concomitant]
     Dosage: 10MG AS REQUIRED

REACTIONS (1)
  - DIABETES MELLITUS [None]
